FAERS Safety Report 5514773-8 (Version None)
Quarter: 2007Q4

REPORT INFORMATION
  Report Type: 
  Country: None (occurrence: None)
  Receive Date: 20071113
  Receipt Date: 20071031
  Transmission Date: 20080405
  Serious: Yes (Other)
  Sender: FDA-Public Use
  Company Number: CZ-GENENTECH-251008

PATIENT
  Sex: Male

DRUGS (4)
  1. AVASTIN [Suspect]
     Indication: COLORECTAL CANCER
     Dosage: 5 MG/KG, Q2W
     Dates: start: 20060722
  2. FLUOROURACIL [Concomitant]
     Indication: COLORECTAL CANCER
  3. FOLINIC ACID [Concomitant]
     Indication: COLORECTAL CANCER
  4. OXALIPLATIN [Concomitant]
     Indication: COLORECTAL CANCER

REACTIONS (2)
  - PROTEINURIA [None]
  - SKIN FISSURES [None]
